FAERS Safety Report 24654750 (Version 3)
Quarter: 2024Q4

REPORT INFORMATION
  Report Type: Report from Study
  Country: US (occurrence: US)
  Receive Date: 20241122
  Receipt Date: 20241220
  Transmission Date: 20250115
  Serious: Yes (Hospitalization, Other)
  Sender: REGENERON
  Company Number: US-REGENERON PHARMACEUTICALS, INC.-2024-146826

PATIENT
  Sex: Male

DRUGS (1)
  1. CEMIPLIMAB [Suspect]
     Active Substance: CEMIPLIMAB
     Indication: Squamous cell carcinoma of skin
     Dosage: 350 MG, Q3W
     Route: 042
     Dates: start: 20241018, end: 20241108

REACTIONS (26)
  - Skin injury [Not Recovered/Not Resolved]
  - Restless legs syndrome [Unknown]
  - Oedema [Unknown]
  - Scab [Unknown]
  - Rash [Unknown]
  - Oral pain [Unknown]
  - Neoplasm malignant [Unknown]
  - Drug ineffective [Unknown]
  - Neoplasm [Unknown]
  - Rash [Unknown]
  - Rash pruritic [Unknown]
  - Skin swelling [Unknown]
  - Skin exfoliation [Unknown]
  - Haemorrhage [Unknown]
  - Scab [Unknown]
  - Lip dry [Unknown]
  - Fluid intake reduced [Unknown]
  - Fatigue [Unknown]
  - Hypersomnia [Unknown]
  - Feeling abnormal [Unknown]
  - Eating disorder [Unknown]
  - Malaise [Unknown]
  - Skin lesion [Unknown]
  - Feeling abnormal [Unknown]
  - Adverse drug reaction [Unknown]
  - Pain [Unknown]

NARRATIVE: CASE EVENT DATE: 20241001
